FAERS Safety Report 7290154-4 (Version None)
Quarter: 2011Q1

REPORT INFORMATION
  Report Type: 
  Country: None (occurrence: None)
  Receive Date: 20110214
  Receipt Date: 20110202
  Transmission Date: 20110831
  Serious: Yes (Other)
  Sender: FDA-Public Use
  Company Number: US-SANOFI-AVENTIS-2011SA007308

PATIENT
  Sex: Female

DRUGS (4)
  1. ALL OTHER THERAPEUTIC PRODUCTS [Suspect]
     Route: 065
  2. LOVENOX [Suspect]
     Indication: THROMBOSIS PROPHYLAXIS
     Route: 065
     Dates: start: 20070101, end: 20090101
  3. LOVENOX [Suspect]
     Route: 065
     Dates: start: 20090101, end: 20110101
  4. ZOMETA [Suspect]
     Route: 065

REACTIONS (2)
  - RENAL IMPAIRMENT [None]
  - THROMBOCYTOPENIA [None]
